FAERS Safety Report 22339891 (Version 1)
Quarter: 2023Q2

REPORT INFORMATION
  Report Type: Report from Study
  Country: FR (occurrence: FR)
  Receive Date: 20230518
  Receipt Date: 20230518
  Transmission Date: 20230721
  Serious: Yes (Hospitalization)
  Sender: FDA-Public Use
  Company Number: FR-JNJFOC-20210125579

PATIENT
  Age: 13 Year
  Sex: Male

DRUGS (5)
  1. PLACEBO [Suspect]
     Active Substance: UNSPECIFIED INGREDIENT
     Indication: Major depression
     Dates: start: 20201001, end: 20201026
  2. PLACEBO [Suspect]
     Active Substance: UNSPECIFIED INGREDIENT
     Indication: Suicidal ideation
  3. FLUOXETINE [Concomitant]
     Active Substance: FLUOXETINE HYDROCHLORIDE
     Indication: Major depression
     Route: 048
     Dates: start: 20201001, end: 20210128
  4. ALPRAZOLAM [Concomitant]
     Active Substance: ALPRAZOLAM
     Indication: Anxiety
     Route: 048
     Dates: start: 20201116
  5. MELATONIN [Concomitant]
     Active Substance: MELATONIN
     Indication: Initial insomnia
     Route: 048
     Dates: start: 20201222

REACTIONS (1)
  - Aggression [Not Recovered/Not Resolved]

NARRATIVE: CASE EVENT DATE: 20210114
